FAERS Safety Report 24143500 (Version 1)
Quarter: 2024Q3

REPORT INFORMATION
  Report Type: Spontaneous
  Country: KR (occurrence: KR)
  Receive Date: 20240727
  Receipt Date: 20240727
  Transmission Date: 20241016
  Serious: Yes (Other)
  Sender: MERCK
  Company Number: KR-009507513-2407KOR012036

PATIENT
  Sex: Female

DRUGS (3)
  1. KEYTRUDA [Suspect]
     Active Substance: PEMBROLIZUMAB
     Dosage: 200 MILLIGRAM, QD, FORMULATION: ALSO REPORTED AS VIAL
     Route: 042
     Dates: start: 20230619, end: 20230619
  2. GEMCITABINE [Suspect]
     Active Substance: GEMCITABINE
     Dosage: 1000 MILLIGRAM, QD, FORMULATION: ALSO REPORTED AS VIAL
     Route: 042
     Dates: start: 20230619, end: 20230619
  3. CARBOPLATIN [Suspect]
     Active Substance: CARBOPLATIN
     Dosage: 255 MILLIGRAM, QD, FORMULATION: ALSO REPORTED AS VIAL
     Route: 042
     Dates: start: 20230619, end: 20230619

REACTIONS (1)
  - Leukopenia [Recovered/Resolved]

NARRATIVE: CASE EVENT DATE: 20230626
